FAERS Safety Report 8905371 (Version 2)
Quarter: 2013Q4

REPORT INFORMATION
  Report Type: Spontaneous
  Country: US (occurrence: US)
  Receive Date: 20121112
  Receipt Date: 20131114
  Transmission Date: 20140711
  Serious: Yes (Hospitalization)
  Sender: FDA-Public Use
  Company Number: US-BAYER-2012-116718

PATIENT
  Age: 36 Year
  Sex: Female
  Weight: 76 kg

DRUGS (11)
  1. OCELLA [Suspect]
  2. YASMIN [Suspect]
  3. NAPROXEN [Concomitant]
     Dosage: 500 MG, UNK
  4. CYCLOBENZAPRINE [Concomitant]
     Dosage: 10 MG, UNK
  5. AZITHROMYCIN [Concomitant]
     Dosage: 250 MG, UNK
  6. LIOTHYRONINE [Concomitant]
     Dosage: 5 ?G, UNK
  7. SYNTHROID [Concomitant]
     Dosage: 100 ?G, DAILY
  8. SPIRONOLACTONE [Concomitant]
     Dosage: 25 MG, BID, DAILY
  9. METFORMIN [Concomitant]
     Dosage: 500 MG, BID, DAILY
  10. CYTOMEL [Concomitant]
     Dosage: 5 ?G, DAILY
  11. AMBIEN [Concomitant]
     Dosage: 5 MG ONCE A DAY (AT BEDTIME) [AS WRITTEN] AS NEEDED
     Dates: start: 20110916, end: 20130312

REACTIONS (2)
  - Deep vein thrombosis [None]
  - Off label use [None]
